FAERS Safety Report 12071881 (Version 3)
Quarter: 2016Q3

REPORT INFORMATION
  Report Type: Report from Study
  Country: US (occurrence: US)
  Receive Date: 20160212
  Receipt Date: 20160722
  Transmission Date: 20161109
  Serious: No
  Sender: FDA-Public Use
  Company Number: US-AMGEN-USASL2016014639

PATIENT
  Age: 48 Year
  Sex: Male

DRUGS (1)
  1. ENBREL [Suspect]
     Active Substance: ETANERCEPT
     Indication: ANKYLOSING SPONDYLITIS
     Dosage: 50 MG, QWK
     Route: 065
     Dates: start: 20160126, end: 201606

REACTIONS (10)
  - Malaise [Unknown]
  - Injection site reaction [Unknown]
  - Dysstasia [Unknown]
  - Injection site erythema [Unknown]
  - Respiratory tract congestion [Unknown]
  - Arteriosclerosis coronary artery [Unknown]
  - Injection site swelling [Unknown]
  - Pain in extremity [Unknown]
  - Pain [Recovering/Resolving]
  - Musculoskeletal stiffness [Unknown]
